FAERS Safety Report 24679019 (Version 1)
Quarter: 2024Q4

REPORT INFORMATION
  Report Type: Report from Study
  Country: FR (occurrence: FR)
  Receive Date: 20241129
  Receipt Date: 20241129
  Transmission Date: 20250114
  Serious: Yes (Other)
  Sender: SERVIER
  Company Number: FR-SERVIER-S24015313

PATIENT

DRUGS (5)
  1. IVOSIDENIB [Suspect]
     Active Substance: IVOSIDENIB
     Indication: Myelodysplastic syndrome
     Dosage: 500 MG, QD
     Route: 048
     Dates: start: 20210527
  2. PERINDOPRIL [Concomitant]
     Active Substance: PERINDOPRIL
     Indication: Hypertension
     Dosage: UNK
     Route: 048
  3. AMLODIPINE [Concomitant]
     Active Substance: AMLODIPINE BESYLATE
     Indication: Hypertension
     Dosage: UNK
     Route: 048
  4. ATORVASTATIN [Concomitant]
     Active Substance: ATORVASTATIN
     Indication: Dyslipidaemia
     Dosage: UNK
     Route: 048
  5. BILASTINE [Concomitant]
     Active Substance: BILASTINE
     Indication: Pruritus
     Dosage: 20 MG
     Route: 048

REACTIONS (1)
  - Erythema annulare [Recovered/Resolved]

NARRATIVE: CASE EVENT DATE: 20241009
